FAERS Safety Report 9498931 (Version 2)
Quarter: 2013Q3

REPORT INFORMATION
  Report Type: Spontaneous
  Country: DE (occurrence: DE)
  Receive Date: 20130904
  Receipt Date: 20130904
  Transmission Date: 20140515
  Serious: Yes (Other)
  Sender: FDA-Public Use
  Company Number: DE-ELI_LILLY_AND_COMPANY-DE201305006507

PATIENT
  Sex: Male

DRUGS (2)
  1. ZYPADHERA [Suspect]
     Indication: SCHIZOPHRENIA
     Dosage: 300 MG, EVERY 4 WEEKS
     Dates: end: 20130521
  2. DELIX                              /00885601/ [Concomitant]
     Dosage: 2.5 DF, BID

REACTIONS (3)
  - Acute hepatitis C [Not Recovered/Not Resolved]
  - Jaundice [Not Recovered/Not Resolved]
  - Hepatic function abnormal [Not Recovered/Not Resolved]
